FAERS Safety Report 7804188-1 (Version None)
Quarter: 2011Q4

REPORT INFORMATION
  Report Type: 
  Country: None (occurrence: None)
  Receive Date: 20111010
  Receipt Date: 20110928
  Transmission Date: 20120403
  Serious: Yes (Life-Threatening, Hospitalization, Other)
  Sender: FDA-Public Use
  Company Number: ES-SANOFI-AVENTIS-2011SA038069

PATIENT
  Age: 75 Year
  Sex: Male
  Weight: 80 kg

DRUGS (12)
  1. ATENOLOL [Concomitant]
     Route: 048
     Dates: start: 20110130
  2. FUROSEMIDE [Concomitant]
     Route: 048
     Dates: start: 19990101
  3. ATENOLOL [Concomitant]
     Route: 048
     Dates: start: 20110130
  4. ALL OTHER THERAPEUTIC PRODUCTS [Suspect]
     Route: 065
  5. TIRODRIL [Concomitant]
  6. MULTAQ [Suspect]
     Indication: ATRIAL FIBRILLATION
     Route: 048
     Dates: start: 20110603, end: 20110605
  7. FUROSEMIDE [Concomitant]
     Route: 048
     Dates: start: 19990101
  8. ATENOLOL [Concomitant]
     Indication: ATRIAL FIBRILLATION
     Route: 048
     Dates: start: 20110130
  9. RADIOACTIVE IODINE SOLUTION [Concomitant]
  10. SINTROM [Concomitant]
     Route: 048
     Dates: start: 19990101
  11. AMIODARONE HCL [Concomitant]
  12. ALLOPURINOL [Concomitant]
     Route: 048
     Dates: start: 19990101

REACTIONS (7)
  - DRUG INTERACTION [None]
  - ACUTE HEPATIC FAILURE [None]
  - VOMITING [None]
  - OFF LABEL USE [None]
  - COAGULOPATHY [None]
  - ASTHENIA [None]
  - CARDIAC FAILURE [None]
